FAERS Safety Report 6392062-X (Version None)
Quarter: 2009Q4

REPORT INFORMATION
  Report Type: 
  Country: None (occurrence: None)
  Receive Date: 20091007
  Receipt Date: 20090930
  Transmission Date: 20100525
  Serious: Yes (Other)
  Sender: FDA-Public Use
  Company Number: EG-ROCHE-660728

PATIENT
  Sex: Male

DRUGS (1)
  1. XELODA [Suspect]
     Indication: COLORECTAL CANCER
     Dosage: DOSE: 1000 (UNITS UNSPECIFIED),  FREQUENCY:TWICE DAILY FOR 2 WEEKS EVERY 3 WEEKS (AS REPORTED)
     Route: 048

REACTIONS (1)
  - DIABETES MELLITUS [None]
